FAERS Safety Report 14687127 (Version 1)
Quarter: 2018Q1

REPORT INFORMATION
  Report Type: Spontaneous
  Country: FR (occurrence: FR)
  Receive Date: 20180328
  Receipt Date: 20180328
  Transmission Date: 20180509
  Serious: Yes (Hospitalization, Other)
  Sender: FDA-Public Use
  Company Number: FR-MERCK KGAA-2044656

PATIENT
  Age: 44 Year
  Sex: Female
  Weight: 97 kg

DRUGS (1)
  1. NOVOTHYROX [Suspect]
     Active Substance: LEVOTHYROXINE SODIUM
     Indication: PRODUCT USED FOR UNKNOWN INDICATION

REACTIONS (20)
  - Anxiety [None]
  - Decreased interest [None]
  - Muscle spasms [None]
  - Anger [None]
  - Social avoidant behaviour [None]
  - Asocial behaviour [None]
  - Suicidal ideation [None]
  - Insomnia [None]
  - Fatigue [None]
  - Loss of libido [None]
  - Alopecia [None]
  - Dizziness [None]
  - Amnesia [None]
  - Confusional state [None]
  - Apathy [None]
  - Headache [None]
  - Loss of personal independence in daily activities [None]
  - Pain in extremity [None]
  - Mood swings [None]
  - Blood thyroid stimulating hormone increased [None]

NARRATIVE: CASE EVENT DATE: 2017
